FAERS Safety Report 6506678-0 (Version None)
Quarter: 2009Q4

REPORT INFORMATION
  Report Type: 
  Country: None (occurrence: None)
  Receive Date: 20091221
  Receipt Date: 20091216
  Transmission Date: 20100525
  Serious: Yes (Death, Other)
  Sender: FDA-Public Use
  Company Number: DE-ROCHE-667207

PATIENT
  Sex: Female
  Weight: 54 kg

DRUGS (2)
  1. XELODA [Suspect]
     Indication: BREAST CANCER
     Dosage: DAYS 1-14
     Route: 048
     Dates: start: 20090803, end: 20090813
  2. UREA CREAM [Concomitant]
     Indication: PROPHYLAXIS
     Route: 061
     Dates: start: 20090803, end: 20090816

REACTIONS (2)
  - NEUTROPENIA [None]
  - THROMBOCYTOPENIA [None]
